FAERS Safety Report 19978668 (Version 2)
Quarter: 2021Q4

REPORT INFORMATION
  Report Type: Report from Study
  Country: US (occurrence: US)
  Receive Date: 20211020
  Receipt Date: 20211103
  Transmission Date: 20220303
  Serious: Yes (Hospitalization, Disabling)
  Sender: FDA-Public Use
  Company Number: US-DUCHESNAY-2021US000066

PATIENT
  Age: 86 Year
  Sex: Female

DRUGS (2)
  1. OSPEMIFENE [Suspect]
     Active Substance: OSPEMIFENE
     Indication: Nocturia
     Dosage: 1 TABLET A DAY
     Route: 048
     Dates: end: 20210407
  2. OSPEMIFENE [Suspect]
     Active Substance: OSPEMIFENE
     Dosage: 60 MG TABLET ONCE DAILY BY MOUTH WITH FOOD
     Route: 048
     Dates: start: 2021

REACTIONS (9)
  - Fall [Unknown]
  - Head injury [Unknown]
  - Memory impairment [Unknown]
  - Gait inability [Unknown]
  - Speech disorder [Unknown]
  - Dysuria [Unknown]
  - Urinary tract infection [Unknown]
  - Intentional product use issue [Unknown]
  - Drug effective for unapproved indication [Unknown]

NARRATIVE: CASE EVENT DATE: 20210301
